FAERS Safety Report 19060516 (Version 10)
Quarter: 2022Q3

REPORT INFORMATION
  Report Type: Report from Study
  Country: US (occurrence: US)
  Receive Date: 20210326
  Receipt Date: 20220901
  Transmission Date: 20221026
  Serious: Yes (Other)
  Sender: FDA-Public Use
  Company Number: NVSC2021US061785

PATIENT
  Age: 82 Year
  Sex: Female

DRUGS (1)
  1. KESIMPTA [Suspect]
     Active Substance: OFATUMUMAB
     Indication: Multiple sclerosis
     Dosage: 20 MG, QMO (SOLUTION) (BENEATH THE SKIN, USUALLY VIA INJECTION)
     Route: 058
     Dates: start: 20210312

REACTIONS (14)
  - Multiple sclerosis relapse [Recovering/Resolving]
  - Hot flush [Recovering/Resolving]
  - Somnolence [Recovering/Resolving]
  - Feeling hot [Recovering/Resolving]
  - Herpes zoster [Recovered/Resolved]
  - Blister [Recovering/Resolving]
  - Swelling of eyelid [Recovering/Resolving]
  - Vision blurred [Recovering/Resolving]
  - Scar [Recovered/Resolved]
  - Disease recurrence [Unknown]
  - Asthenia [Recovering/Resolving]
  - Speech disorder [Recovered/Resolved]
  - Muscular weakness [Recovered/Resolved]
  - Hypotonia [Recovered/Resolved]

NARRATIVE: CASE EVENT DATE: 20210313
